FAERS Safety Report 19815640 (Version 1)
Quarter: 2021Q3

REPORT INFORMATION
  Report Type: Report from Study
  Country: US (occurrence: US)
  Receive Date: 20210909
  Receipt Date: 20210909
  Transmission Date: 20211014
  Serious: Yes (Hospitalization, Other)
  Sender: FDA-Public Use
  Company Number: US-PFIZER INC-202101147187

PATIENT
  Age: 40 Year
  Sex: Male
  Weight: 96 kg

DRUGS (3)
  1. CELEBREX [Suspect]
     Active Substance: CELECOXIB
     Dosage: UNK
     Dates: end: 2021
  2. SILDENAFIL CITRATE. [Concomitant]
     Active Substance: SILDENAFIL CITRATE
     Dosage: UNK
  3. TYVASO [Suspect]
     Active Substance: TREPROSTINIL
     Indication: PULMONARY ARTERIAL HYPERTENSION
     Dosage: UNK UNK, 4X/DAY (18?54 UG (3?9 BREATHS)
     Route: 055
     Dates: start: 20210420

REACTIONS (11)
  - Nausea [Unknown]
  - Hypoxia [Unknown]
  - Dyspnoea [Unknown]
  - Dizziness [Unknown]
  - Balance disorder [Unknown]
  - Renal disorder [Unknown]
  - Fluid retention [Unknown]
  - Oxygen saturation decreased [Unknown]
  - Asthenia [Unknown]
  - Respiratory tract congestion [Unknown]
  - Emotional disorder [Unknown]

NARRATIVE: CASE EVENT DATE: 2021
